FAERS Safety Report 9270369 (Version 1)
Quarter: 2013Q2

REPORT INFORMATION
  Report Type: Spontaneous
  Country: US (occurrence: US)
  Receive Date: 20130503
  Receipt Date: 20130503
  Transmission Date: 20140414
  Serious: No
  Sender: FDA-Public Use
  Company Number: US-JNJFOC-20130416936

PATIENT
  Age: 41 Year
  Sex: Female
  Weight: 99.79 kg

DRUGS (5)
  1. SANDOZ FENTANYL TRANSDERMAL SYSTEM [Suspect]
     Indication: BACK PAIN
     Route: 062
     Dates: start: 20130420
  2. CYMBALTA [Concomitant]
     Indication: NEURALGIA
     Route: 048
  3. CELEBREX [Concomitant]
     Indication: ARTHRITIS
     Route: 048
  4. VOLTAREN [Concomitant]
     Indication: PAIN
     Dosage: AS NEEDED
     Route: 061
  5. ZANTAC [Concomitant]
     Indication: GASTROOESOPHAGEAL REFLUX DISEASE
     Route: 048

REACTIONS (8)
  - Pain [Recovered/Resolved]
  - Drug administration error [Not Recovered/Not Resolved]
  - Influenza like illness [Recovered/Resolved]
  - Nausea [Recovering/Resolving]
  - Dizziness [Recovered/Resolved]
  - Hyperhidrosis [Not Recovered/Not Resolved]
  - Distractibility [Not Recovered/Not Resolved]
  - Disturbance in attention [Not Recovered/Not Resolved]
